FAERS Safety Report 5204045-3 (Version None)
Quarter: 2007Q1

REPORT INFORMATION
  Report Type: 
  Country: None (occurrence: None)
  Receive Date: 20070110
  Receipt Date: 20060120
  Transmission Date: 20070707
  Serious: Yes (Hospitalization)
  Sender: FDA-Public Use
  Company Number: US-BRISTOL-MYERS SQUIBB COMPANY-13165816

PATIENT
  Age: 23 Year
  Sex: Male

DRUGS (3)
  1. ABILIFY [Suspect]
     Indication: SCHIZOAFFECTIVE DISORDER
     Dosage: DOSE REDUCED TO 15 MG, THEN STOPPED
     Route: 048
     Dates: start: 20030912, end: 20040316
  2. PROPRANOLOL HYDROCHLORIDE [Concomitant]
  3. KLONOPIN [Concomitant]

REACTIONS (5)
  - AGITATION [None]
  - AKATHISIA [None]
  - HALLUCINATION, AUDITORY [None]
  - LIBIDO INCREASED [None]
  - LOSS OF CONSCIOUSNESS [None]
